FAERS Safety Report 8428030-3 (Version None)
Quarter: 2012Q2

REPORT INFORMATION
  Report Type: 
  Country: None (occurrence: None)
  Receive Date: 20120611
  Receipt Date: 20120531
  Transmission Date: 20120825
  Serious: Yes (Hospitalization)
  Sender: FDA-Public Use
  Company Number: JP-CELGENEUS-087-50794-12060927

PATIENT
  Sex: Male
  Weight: 50 kg

DRUGS (32)
  1. GRANISETRON HYDROCHLORIDE [Concomitant]
     Route: 065
     Dates: start: 20120207, end: 20120213
  2. HEPARIN SODIUM [Concomitant]
     Route: 065
  3. MEROPENEM [Concomitant]
     Route: 065
     Dates: start: 20111124, end: 20111130
  4. TEICOPLANIN [Concomitant]
     Route: 065
     Dates: start: 20120310, end: 20120315
  5. EXJADE [Concomitant]
     Route: 065
  6. SILECE [Concomitant]
     Route: 065
  7. MEROPENEM [Concomitant]
     Route: 065
     Dates: start: 20111224, end: 20120104
  8. FUNGUARD [Concomitant]
     Route: 065
     Dates: start: 20111125, end: 20111130
  9. PRIMPERAN TAB [Concomitant]
     Route: 065
     Dates: start: 20120211, end: 20120324
  10. ITRACONAZOLE [Concomitant]
     Route: 065
     Dates: start: 20111107, end: 20111124
  11. GRANISETRON HYDROCHLORIDE [Concomitant]
     Route: 065
     Dates: start: 20111108, end: 20111114
  12. VIDAZA [Suspect]
     Dosage: 75 MILLIGRAM/SQ. METER
     Route: 041
     Dates: start: 20120319, end: 20120325
  13. ITRACONAZOLE [Concomitant]
     Route: 065
     Dates: start: 20111201
  14. LEVOFLOXACIN [Concomitant]
     Route: 065
  15. GRANISETRON HYDROCHLORIDE [Concomitant]
     Route: 065
     Dates: start: 20111222, end: 20111228
  16. OMEPTOROL [Concomitant]
     Route: 065
     Dates: start: 20111205
  17. NEUTROGIN [Concomitant]
     Route: 065
     Dates: start: 20111123, end: 20111127
  18. FLURBIPROFEN [Concomitant]
     Route: 065
     Dates: start: 20111110
  19. VIDAZA [Suspect]
     Dosage: 75 MILLIGRAM/SQ. METER
     Route: 041
     Dates: start: 20111222, end: 20111228
  20. BIO-THREE [Concomitant]
     Route: 065
     Dates: start: 20111110
  21. TEICOPLANIN [Concomitant]
     Route: 065
     Dates: start: 20111124, end: 20111130
  22. VIDAZA [Suspect]
     Dosage: 75 MILLIGRAM/SQ. METER
     Route: 041
     Dates: start: 20120207, end: 20120213
  23. RABEPRAZOLE SODIUM [Concomitant]
     Route: 065
     Dates: start: 20120309, end: 20120325
  24. MEROPENEM [Concomitant]
     Route: 065
     Dates: start: 20120310, end: 20120315
  25. IMIPENEM AND CILASTATIN SODIUM [Concomitant]
     Route: 065
     Dates: start: 20120321, end: 20120404
  26. LEVOFLOXACIN [Concomitant]
     Route: 065
     Dates: start: 20111107, end: 20111228
  27. SODIUM CHLORIDE [Concomitant]
     Route: 065
  28. GRANISETRON HYDROCHLORIDE [Concomitant]
     Route: 065
     Dates: start: 20120319, end: 20120325
  29. MEROPENEM [Concomitant]
     Route: 065
     Dates: start: 20111208, end: 20111214
  30. NEO-MINOPHAGEN C [Concomitant]
     Route: 065
     Dates: start: 20120209
  31. VIDAZA [Suspect]
     Dosage: 75 MILLIGRAM/SQ. METER
     Route: 041
     Dates: start: 20111108, end: 20111114
  32. LANSOPRAZOLE [Concomitant]
     Route: 065
     Dates: end: 20111204

REACTIONS (1)
  - HEPATIC FUNCTION ABNORMAL [None]
